FAERS Safety Report 15244557 (Version 2)
Quarter: 2018Q4

REPORT INFORMATION
  Report Type: Spontaneous
  Country: US (occurrence: US)
  Receive Date: 20180806
  Receipt Date: 20181016
  Transmission Date: 20190204
  Serious: No
  Sender: FDA-Public Use
  Company Number: US-GLAXOSMITHKLINE-US2018136259

PATIENT
  Age: 72 Year
  Sex: Female
  Weight: 62.13 kg

DRUGS (2)
  1. BREO ELLIPTA [Suspect]
     Active Substance: FLUTICASONE FUROATE\VILANTEROL TRIFENATATE
     Indication: SARCOIDOSIS
  2. BREO ELLIPTA [Suspect]
     Active Substance: FLUTICASONE FUROATE\VILANTEROL TRIFENATATE
     Indication: ASTHMA
     Dosage: 1 PUFF(S), 1D
     Route: 055
     Dates: start: 20180725

REACTIONS (11)
  - Pain in extremity [Unknown]
  - Product dose omission [Unknown]
  - Tic [Unknown]
  - Peritoneal disorder [Not Recovered/Not Resolved]
  - Product use in unapproved indication [Unknown]
  - Back pain [Not Recovered/Not Resolved]
  - Cough [Unknown]
  - Urinary incontinence [Not Recovered/Not Resolved]
  - Cystitis [Unknown]
  - Haemoptysis [Unknown]
  - Throat clearing [Unknown]

NARRATIVE: CASE EVENT DATE: 201807
